FAERS Safety Report 6107244-1 (Version None)
Quarter: 2009Q1

REPORT INFORMATION
  Report Type: 
  Country: None (occurrence: None)
  Receive Date: 20090305
  Receipt Date: 20090302
  Transmission Date: 20090719
  Serious: Yes (Disabling)
  Sender: FDA-Public Use
  Company Number: APP200900106

PATIENT
  Sex: Female

DRUGS (4)
  1. BUPIVACAINE HYDROCHLORIDE AND EPINEPHRINE [Suspect]
     Indication: ARTHRALGIA
     Dosage: 0.5% CONTINUOUS VIA PUMP, INTRA-ARTICULAR
     Route: 014
     Dates: start: 20050912
  2. BUPIVACAINE HYDROCHLORIDE AND EPINEPHRINE [Suspect]
     Indication: PROCEDURAL PAIN
     Dosage: 0.5% CONTINUOUS VIA PUMP, INTRA-ARTICULAR
     Route: 014
     Dates: start: 20050912
  3. BREG PAIN PUMP [Suspect]
     Indication: ARTHRALGIA
     Dates: start: 20050912
  4. BREG PAIN PUMP [Suspect]
     Indication: PROCEDURAL PAIN
     Dates: start: 20050912

REACTIONS (2)
  - CHONDROLYSIS [None]
  - MUSCULOSKELETAL PAIN [None]
